FAERS Safety Report 4868653-1 (Version None)
Quarter: 2005Q4

REPORT INFORMATION
  Report Type: 
  Country: None (occurrence: None)
  Receive Date: 20051223
  Receipt Date: 20051214
  Transmission Date: 20060501
  Serious: Yes (Other)
  Sender: FDA-Public Use
  Company Number: 2005155585

PATIENT
  Age: 79 Year
  Sex: Female
  Weight: 79.7 kg

DRUGS (14)
  1. EPIRUBICIN [Suspect]
     Indication: BREAST CANCER
     Dosage: 135 MG (EVERY 3 WEEKS), INTRAVENOUS
     Route: 042
     Dates: start: 20020117, end: 20020613
  2. FLUOROURACIL [Suspect]
     Indication: BREAST CANCER
     Dosage: 900 MG (EVERY THREE WEEKS) INTRAVENOUS
     Route: 042
     Dates: start: 20020117, end: 20020613
  3. CYCLOPHOSPHAMIDE [Suspect]
     Indication: BREAST CANCER
     Dosage: 900 MG (EVERY THREE WEEKS) INTRAVENOUS
     Route: 042
     Dates: start: 20020117, end: 20020613
  4. TAXOL [Suspect]
     Indication: BREAST CANCER
     Dosage: 405 MG (EVERY THREE WEEKS), INTRAVENOUS
     Route: 042
     Dates: start: 20020117, end: 20020321
  5. LIPITOR [Concomitant]
  6. ACTOS [Concomitant]
  7. COREG [Concomitant]
  8. LASIX [Concomitant]
  9. SPIRONOLACTONE [Concomitant]
  10. REGLAN [Concomitant]
  11. WARFARIN (WARFARIN) [Concomitant]
  12. AMARYL [Concomitant]
  13. INSULIN [Concomitant]
  14. NIFEREX (POLYSACCHARIDE-IRON COMPLEX) [Concomitant]

REACTIONS (4)
  - CARDIAC FAILURE CONGESTIVE [None]
  - CARDIOMYOPATHY [None]
  - CONDITION AGGRAVATED [None]
  - MYOCARDIAL INFARCTION [None]
